APPROVED DRUG PRODUCT: TUZISTRA XR
Active Ingredient: CHLORPHENIRAMINE POLISTIREX; CODEINE POLISTIREX
Strength: EQ 2.8MG BASE/5ML;EQ 14.7MG BASE/5ML
Dosage Form/Route: SUSPENSION, EXTENDED RELEASE;ORAL
Application: N207768 | Product #001
Applicant: TRIS PHARMA INC
Approved: Apr 30, 2015 | RLD: Yes | RS: No | Type: DISCN

PATENTS:
Patent 8790700 | Expires: Mar 15, 2027
Patent 8062667 | Expires: Mar 29, 2029